FAERS Safety Report 8986013 (Version 1)
Quarter: 2012Q4

REPORT INFORMATION
  Report Type: 
  Country: GB (occurrence: GB)
  Receive Date: 20121226
  Receipt Date: 20121226
  Transmission Date: 20130627
  Serious: Yes (Other)
  Sender: FDA-Public Use
  Company Number: GB-ASTELLAS-2012EU010162

PATIENT
  Sex: Female
  Weight: 47.7 kg

DRUGS (9)
  1. VESICARE [Suspect]
     Indication: MIXED INCONTINENCE
     Dosage: 5 mg, UID/QD
     Route: 048
     Dates: start: 20060811, end: 20060829
  2. VESICARE [Suspect]
     Dosage: 5 mg, UID/QD
     Route: 048
     Dates: start: 20110922, end: 20111110
  3. DIGOXIN [Concomitant]
     Dosage: UNK
     Route: 065
  4. LEVOTHYROXINE [Concomitant]
     Dosage: UNK
     Route: 065
  5. VALSARTAN [Concomitant]
     Dosage: UNK
     Route: 065
  6. VERAPAMIL [Concomitant]
     Dosage: UNK
     Route: 065
  7. WARFARIN [Concomitant]
     Dosage: UNK
     Route: 065
  8. SYMBICORT [Concomitant]
     Dosage: UNK
     Route: 065
  9. CEFALEXIN [Concomitant]
     Dosage: UNK
     Route: 065

REACTIONS (3)
  - Dyspnoea [Recovered/Resolved]
  - Dyspnoea [Recovered/Resolved]
  - Cardiac disorder [Unknown]
